FAERS Safety Report 5926834 (Version 2)
Quarter: 2012Q4

REPORT INFORMATION
  Report Type: 
  Country: GB (occurrence: GB)
  Receive Date: 20051122
  Receipt Date: 20121121
  Transmission Date: 20130627
  Serious: Yes (Hospitalization)
  Sender: FDA-Public Use
  Company Number: GB-JNJFOC-20051104633

PATIENT
  Age: 47 Year
  Sex: Male

DRUGS (3)
  1. PARACETAMOL [Suspect]
     Route: 048
  2. PARACETAMOL [Suspect]
     Indication: PRODUCT USED FOR UNKNOWN INDICATION
     Route: 048
     Dates: start: 20051002, end: 20051002
  3. IBUPROFEN [Suspect]
     Indication: PRODUCT USED FOR UNKNOWN INDICATION
     Route: 048
     Dates: start: 20051002, end: 20051002

REACTIONS (10)
  - Gastrointestinal haemorrhage [Recovering/Resolving]
  - Pain [Recovering/Resolving]
  - Rectal haemorrhage [Recovering/Resolving]
  - Haematemesis [Recovering/Resolving]
  - Dizziness [Recovering/Resolving]
  - Abdominal pain [Recovering/Resolving]
  - Melaena [Recovering/Resolving]
  - Haemoglobin decreased [None]
  - Prothrombin time prolonged [None]
  - Blood potassium decreased [None]
